FAERS Safety Report 7490392-1 (Version None)
Quarter: 2011Q2

REPORT INFORMATION
  Report Type: 
  Country: None (occurrence: None)
  Receive Date: 20110519
  Receipt Date: 20110415
  Transmission Date: 20111010
  Serious: Yes (Other)
  Sender: FDA-Public Use
  Company Number: US-BAYER-201024917NA

PATIENT
  Age: 28 Year
  Sex: Female

DRUGS (10)
  1. IMITREX [Concomitant]
  2. WELLBUTRIN XL [Concomitant]
  3. AMOXICILLIN [Concomitant]
  4. HYDROCODONE [Concomitant]
  5. CELEXA [Concomitant]
  6. YASMIN [Suspect]
     Indication: CONTRACEPTION
     Route: 048
     Dates: start: 20050830, end: 20060929
  7. MULTI-VITAMIN [Concomitant]
  8. YAZ [Suspect]
     Indication: CONTRACEPTION
     Route: 048
     Dates: start: 20060930, end: 20091016
  9. EFFEXOR [Concomitant]
  10. OXCARBAZEPINE [Concomitant]
     Dosage: 150 MG, UNK
     Route: 048
     Dates: start: 20080118

REACTIONS (5)
  - CHOLECYSTITIS CHRONIC [None]
  - ABDOMINAL PAIN [None]
  - ABDOMINAL PAIN UPPER [None]
  - CHEST PAIN [None]
  - GALLBLADDER POLYP [None]
